FAERS Safety Report 7328596-0 (Version None)
Quarter: 2011Q1

REPORT INFORMATION
  Report Type: 
  Country: None (occurrence: None)
  Receive Date: 20110303
  Receipt Date: 20110228
  Transmission Date: 20110831
  Serious: Yes (Other)
  Sender: FDA-Public Use
  Company Number: JP-SANOFI-AVENTIS-2011SA010871

PATIENT
  Sex: Male

DRUGS (5)
  1. MEILAX [Concomitant]
     Route: 048
  2. AMARYL [Suspect]
     Route: 048
  3. DEPAS [Concomitant]
     Route: 048
  4. PAXIL [Concomitant]
     Route: 048
  5. ALL OTHER THERAPEUTIC PRODUCTS [Concomitant]

REACTIONS (1)
  - LOSS OF CONSCIOUSNESS [None]
